FAERS Safety Report 5860068-2 (Version None)
Quarter: 2008Q3

REPORT INFORMATION
  Report Type: 
  Country: None (occurrence: None)
  Receive Date: 20080827
  Receipt Date: 20080815
  Transmission Date: 20090109
  Serious: Yes (Hospitalization, Other)
  Sender: FDA-Public Use
  Company Number: US-PFIZER INC-2008068574

PATIENT
  Sex: Female
  Weight: 892.2 kg

DRUGS (7)
  1. GEODON [Suspect]
     Indication: SUICIDAL IDEATION
  2. GEODON [Suspect]
     Indication: DEPRESSION
  3. EFFEXOR XR [Concomitant]
  4. XANAX [Concomitant]
  5. SEROQUEL [Concomitant]
  6. WELLBUTRIN SR [Concomitant]
  7. LAMICTAL [Concomitant]

REACTIONS (4)
  - DRUG INEFFECTIVE [None]
  - SUICIDAL BEHAVIOUR [None]
  - SUICIDE ATTEMPT [None]
  - WITHDRAWAL SYNDROME [None]
